FAERS Safety Report 9459668 (Version 1)
Quarter: 2013Q3

REPORT INFORMATION
  Report Type: Spontaneous
  Country: JP (occurrence: JP)
  Receive Date: 20130815
  Receipt Date: 20130815
  Transmission Date: 20140515
  Serious: Yes (Hospitalization)
  Sender: FDA-Public Use
  Company Number: PHHY2013JP087534

PATIENT
  Sex: 0

DRUGS (1)
  1. DIOVAN [Suspect]
     Indication: HYPERTENSION
     Route: 048
     Dates: start: 2000, end: 201307

REACTIONS (4)
  - Angina pectoris [Unknown]
  - Skin lesion [Not Recovered/Not Resolved]
  - Skin discolouration [Unknown]
  - Local swelling [Unknown]
